FAERS Safety Report 5010467-6 (Version None)
Quarter: 2006Q2

REPORT INFORMATION
  Report Type: 
  Country: None (occurrence: None)
  Receive Date: 20060523
  Receipt Date: 20060509
  Transmission Date: 20061013
  Serious: Yes (Hospitalization)
  Sender: FDA-Public Use
  Company Number: 2006RL000168

PATIENT
  Age: 65 Year
  Sex: Female
  Weight: 105.2345 kg

DRUGS (20)
  1. RYTHMOL [Suspect]
     Indication: ATRIAL FIBRILLATION
     Dosage: 325 MG; BID; PO
     Route: 048
     Dates: start: 20060505, end: 20060511
  2. RYTHMOL [Suspect]
     Indication: ATRIAL FIBRILLATION
     Dosage: 225 MG; Q12H; PO
     Route: 048
     Dates: start: 20060504, end: 20060505
  3. WARFARIN [Concomitant]
  4. METOPROLOL TARTRATE [Concomitant]
  5. ENOXAPARIN SODIUM [Concomitant]
  6. METOPROLOL TARTRATE [Concomitant]
  7. ALTACE [Concomitant]
  8. ACTOS [Concomitant]
  9. ZOLOFT [Concomitant]
  10. ATIVAN [Concomitant]
  11. DITROPAN [Concomitant]
  12. VYTORIN [Concomitant]
  13. GLIMEPIRIDE [Concomitant]
  14. PREMARIN [Concomitant]
  15. LOMOTIL [Concomitant]
  16. ZOCOR [Concomitant]
  17. ZETIA [Concomitant]
  18. PROTONIX [Concomitant]
  19. LOPRESSOR [Concomitant]
  20. MORPHINE SULFATE [Concomitant]

REACTIONS (25)
  - BLOOD CALCIUM ABNORMAL [None]
  - BLOOD CHLORIDE ABNORMAL [None]
  - BLOOD GLUCOSE ABNORMAL [None]
  - BLOOD POTASSIUM ABNORMAL [None]
  - BLOOD PRESSURE INCREASED [None]
  - BLOOD PRESSURE SYSTOLIC INCREASED [None]
  - BRAIN NATRIURETIC PEPTIDE ABNORMAL [None]
  - CARBON DIOXIDE ABNORMAL [None]
  - CARDIAC FAILURE [None]
  - CARDIAC FAILURE CONGESTIVE [None]
  - CHEST X-RAY ABNORMAL [None]
  - DIASTOLIC DYSFUNCTION [None]
  - DRUG INTOLERANCE [None]
  - ELECTROCARDIOGRAM QT INTERVAL ABNORMAL [None]
  - ELECTROCARDIOGRAM T WAVE ABNORMAL [None]
  - GASTROOESOPHAGEAL REFLUX DISEASE [None]
  - HAEMATOCRIT ABNORMAL [None]
  - HYPERTENSION [None]
  - INTERNATIONAL NORMALISED RATIO INCREASED [None]
  - JUGULAR VEIN DISTENSION [None]
  - OEDEMA PERIPHERAL [None]
  - PAIN [None]
  - PROTHROMBIN TIME ABNORMAL [None]
  - RALES [None]
  - RED BLOOD CELL COUNT ABNORMAL [None]
